FAERS Safety Report 8559997-0 (Version None)
Quarter: 2012Q3

REPORT INFORMATION
  Report Type: 
  Country: None (occurrence: None)
  Receive Date: 20120802
  Receipt Date: 20120720
  Transmission Date: 20120928
  Serious: Yes (Other)
  Sender: FDA-Public Use
  Company Number: JP-PFIZER INC-2012175904

PATIENT
  Age: 92 Year
  Sex: Female

DRUGS (7)
  1. WARFARIN [Concomitant]
     Dosage: UNK
     Route: 048
     Dates: start: 20120429
  2. CELEBREX [Suspect]
     Indication: PAIN IN EXTREMITY
     Dosage: 100 MG, 2X/DAY
     Route: 048
     Dates: start: 20120409, end: 20120508
  3. MEILAX [Concomitant]
     Dosage: UNK
     Route: 048
  4. FLOMAX [Concomitant]
     Dosage: UNK
     Route: 048
     Dates: start: 20120501
  5. CONIEL [Concomitant]
     Dosage: UNK
  6. MUCOSTA [Concomitant]
     Dosage: UNK
     Dates: start: 20120409
  7. ENTERONON R [Concomitant]
     Dosage: UNK

REACTIONS (2)
  - INTERNATIONAL NORMALISED RATIO INCREASED [None]
  - OFF LABEL USE [None]
